FAERS Safety Report 7171546-0 (Version None)
Quarter: 2010Q4

REPORT INFORMATION
  Report Type: 
  Country: None (occurrence: None)
  Receive Date: 20101217
  Receipt Date: 20101213
  Transmission Date: 20110411
  Serious: Yes (Life-Threatening, Other)
  Sender: FDA-Public Use
  Company Number: JP-PFIZER INC-2010157991

PATIENT
  Age: 18 Day
  Sex: Male
  Weight: 3 kg

DRUGS (10)
  1. REVATIO [Suspect]
     Indication: PULMONARY HYPERTENSION
     Dosage: 3 MG, DAILY
     Dates: start: 20101117, end: 20101119
  2. DORNER [Suspect]
     Indication: PULMONARY HYPERTENSION
     Dosage: 3 UG, 1X/DAY
  3. NITOROL [Suspect]
     Indication: PULMONARY HYPERTENSION
     Dosage: UNK
     Route: 042
     Dates: start: 20101111, end: 20101122
  4. DOPAMINE HYDROCHLORIDE [Concomitant]
     Dosage: UNK
     Route: 042
     Dates: start: 20101111
  5. LANDIOLOL HYDROCHLORIDE [Concomitant]
     Dosage: UNK
     Route: 042
     Dates: start: 20101114
  6. CORETEC [Concomitant]
     Dosage: UNK
     Route: 042
     Dates: start: 20101111, end: 20101125
  7. MIDAZOLAM [Concomitant]
     Dosage: UNK
     Route: 042
     Dates: start: 20101117
  8. SOLDEM 3A [Concomitant]
     Dosage: UNK
     Route: 042
     Dates: start: 20101111
  9. MANNITOL [Concomitant]
     Dosage: UNK
     Route: 042
     Dates: start: 20101113
  10. LASIX [Concomitant]
     Dosage: UNK
     Route: 042
     Dates: start: 20101113

REACTIONS (3)
  - BLOOD PRESSURE DECREASED [None]
  - OXYGEN SATURATION DECREASED [None]
  - SHOCK [None]
